FAERS Safety Report 25652257 (Version 2)
Quarter: 2025Q3

REPORT INFORMATION
  Report Type: Report from Study
  Country: US (occurrence: US)
  Receive Date: 20250807
  Receipt Date: 20250922
  Transmission Date: 20251020
  Serious: Yes (Hospitalization, Other)
  Sender: JAZZ
  Company Number: US-JAZZ PHARMACEUTICALS-2025-US-010340

PATIENT
  Age: 67 Year
  Sex: Male

DRUGS (14)
  1. XYWAV [Suspect]
     Active Substance: CALCIUM OXYBATE\MAGNESIUM OXYBATE\POTASSIUM OXYBATE\SODIUM OXYBATE
     Indication: Narcolepsy
  2. XYWAV [Suspect]
     Active Substance: CALCIUM OXYBATE\MAGNESIUM OXYBATE\POTASSIUM OXYBATE\SODIUM OXYBATE
     Indication: Cataplexy
  3. XYWAV [Suspect]
     Active Substance: CALCIUM OXYBATE\MAGNESIUM OXYBATE\POTASSIUM OXYBATE\SODIUM OXYBATE
     Indication: Somnolence
  4. SPIRONOLACTONE AND HYDROCHLOROTHIAZIDE [Concomitant]
     Active Substance: HYDROCHLOROTHIAZIDE\SPIRONOLACTONE
     Indication: Hypertension
  5. ALBUTEROL [Concomitant]
     Active Substance: ALBUTEROL
     Indication: Dyspnoea
  6. ROFLUMILAST [Concomitant]
     Active Substance: ROFLUMILAST
     Indication: Dyspnoea
  7. FUROSEMIDE [Concomitant]
     Active Substance: FUROSEMIDE
     Indication: Product used for unknown indication
  8. DILTIAZEM [Concomitant]
     Active Substance: DILTIAZEM
     Indication: Hypertension
  9. VANCOMYCIN [Concomitant]
     Active Substance: VANCOMYCIN
     Indication: Product used for unknown indication
  10. MODAFINIL [Concomitant]
     Active Substance: MODAFINIL
     Indication: Product used for unknown indication
  11. METOPROLOL [Concomitant]
     Active Substance: METOPROLOL
     Indication: Product used for unknown indication
  12. NICOTINE [Concomitant]
     Active Substance: NICOTINE
     Indication: Product used for unknown indication
  13. HYDROCHLOROTHIAZIDE [Concomitant]
     Active Substance: HYDROCHLOROTHIAZIDE
     Indication: Product used for unknown indication
  14. OXYCODONE [Concomitant]
     Active Substance: OXYCODONE
     Indication: Product used for unknown indication

REACTIONS (9)
  - Pneumonia [Recovered/Resolved]
  - Atrial flutter [Recovering/Resolving]
  - Hospitalisation [Unknown]
  - Staphylococcal infection [Unknown]
  - Amnesia [Unknown]
  - Dry skin [Unknown]
  - Fungal foot infection [Unknown]
  - Fungal infection [Unknown]
  - Prescribed underdose [Unknown]

NARRATIVE: CASE EVENT DATE: 20250721
